FAERS Safety Report 8435326-8 (Version None)
Quarter: 2012Q2

REPORT INFORMATION
  Report Type: 
  Country: None (occurrence: None)
  Receive Date: 20120614
  Receipt Date: 20120607
  Transmission Date: 20120825
  Serious: Yes (Other)
  Sender: FDA-Public Use
  Company Number: SE-NAPPMUNDI-GBR-2012-0010764

PATIENT
  Sex: Male

DRUGS (7)
  1. DURAGESIC-100 [Concomitant]
     Dosage: UNK
     Dates: start: 20120411, end: 20120412
  2. MORPHINE SULFATE [Suspect]
     Indication: MALIGNANT NEOPLASM OF THORAX
     Dosage: 20 MG, DAILY
     Route: 048
     Dates: start: 20120321, end: 20120408
  3. MORPHINE [Suspect]
     Indication: MALIGNANT NEOPLASM OF THORAX
     Dosage: 5 MG, PRN
     Route: 065
     Dates: start: 20120321, end: 20120419
  4. ENALAPRIL MALEATE [Concomitant]
     Dosage: UNK
  5. ALVEDON [Concomitant]
     Dosage: UNK
  6. GLIPIZIDE [Concomitant]
     Dosage: UNK TABLET, UNK
  7. BETOLVIDON [Concomitant]
     Dosage: UNK

REACTIONS (4)
  - WEIGHT DECREASED [None]
  - FAECALOMA [None]
  - CONSTIPATION [None]
  - NAUSEA [None]
